FAERS Safety Report 16721295 (Version 3)
Quarter: 2019Q4

REPORT INFORMATION
  Report Type: Spontaneous
  Country: US (occurrence: US)
  Receive Date: 20190820
  Receipt Date: 20191213
  Transmission Date: 20200122
  Serious: No
  Sender: FDA-Public Use
  Company Number: US-PFIZER INC-2019351627

PATIENT
  Age: 50 Year
  Sex: Female
  Weight: 80.29 kg

DRUGS (21)
  1. GAMMA-LINOLENIC ACID [Concomitant]
     Dosage: 240 MG, 1X/DAY(240MG1/PO (ORAL))
     Route: 048
  2. ADDERALL [Concomitant]
     Active Substance: AMPHETAMINE ASPARTATE\AMPHETAMINE SULFATE\DEXTROAMPHETAMINE SACCHARATE\DEXTROAMPHETAMINE SULFATE
     Dosage: 20 MG, 1X/DAY(20MG-1/PO (ORAL)/AM)
     Route: 048
  3. TOPAMAX [Concomitant]
     Active Substance: TOPIRAMATE
     Dosage: 50 MG, 2X/DAY(50MG 1 PO (ORAL)/BID (TWICE A DAY))
     Route: 048
  4. ALPHA LIPOIC ACID [Concomitant]
     Active Substance: .ALPHA.-LIPOIC ACID
     Dosage: 100 MG, DAILY
     Route: 048
  5. BENADRYL [Concomitant]
     Active Substance: DIPHENHYDRAMINE HYDROCHLORIDE
     Dosage: 1X/DAY(20MG 3/PO (ORAL)/PM)
     Route: 048
  6. VITAMIN B12 [Concomitant]
     Active Substance: CYANOCOBALAMIN
     Dosage: 2500 MG, DAILY
     Route: 048
  7. NORCO [Concomitant]
     Active Substance: ACETAMINOPHEN\HYDROCODONE BITARTRATE
     Dosage: UNK, 3X/DAY [5/325MG-1 PO (ORAL)/TID (THREE TIMES A DAY)]
     Route: 048
  8. ADVAIR HFA [Concomitant]
     Active Substance: FLUTICASONE PROPIONATE\SALMETEROL XINAFOATE
     Dosage: UNK, 1X/DAY [1 PUFF/PM]
  9. PROPANOLOL [PROPRANOLOL] [Concomitant]
     Active Substance: PROPRANOLOL HYDROCHLORIDE
     Dosage: 20 MG, 2X/DAY
     Route: 048
  10. TIZANIDINE HCL [Concomitant]
     Active Substance: TIZANIDINE HYDROCHLORIDE
     Dosage: 6 MG, 1X/DAY(6MG 1 PO (ORAL)/PM)
     Route: 048
  11. ROBAXIN [Concomitant]
     Active Substance: METHOCARBAMOL
     Indication: MUSCLE SPASMS
     Dosage: 750 MG, AS NEEDED(750MG 1 PO (ORAL)/[PRN](AS NEEDED)TID (THREE TIMES A DAY))
     Route: 048
  12. VITAMIN C [Concomitant]
     Active Substance: ASCORBIC ACID
     Dosage: 1000 MG, 1X/DAY
     Route: 048
  13. PREMARIN [Suspect]
     Active Substance: ESTROGENS, CONJUGATED
     Dosage: 0.45 MG, UNK (0.45MG MONDAY-FRIDAY BY MOUTH, 5 DAYS A WEEK )
     Route: 048
     Dates: start: 20190708, end: 20190807
  14. PREVACID [Concomitant]
     Active Substance: LANSOPRAZOLE
     Dosage: UNK, 1X/DAY [15M-/ 1 PO (ORAL)/AM]
     Route: 048
  15. TRAZODONE [Concomitant]
     Active Substance: TRAZODONE HYDROCHLORIDE
     Dosage: 150 MG, 1X/DAY(150MG 1 PO (ORAL)/PM)
     Route: 048
  16. FLEXERIL [CEFIXIME] [Concomitant]
     Active Substance: CEFIXIME
     Dosage: 20 MG, 1X/DAY [20MG-1/PO (ORAL)/AM]
     Route: 048
  17. MAGNESIUM OXIDE. [Concomitant]
     Active Substance: MAGNESIUM OXIDE
     Dosage: 1500 MG, DAILY [500MG-3 PO (ORAL)/DAY]
     Route: 048
  18. COQ10 [TOCOPHERYL ACETATE;UBIDECARENONE] [Concomitant]
     Dosage: 100 MG, DAILY
     Route: 048
  19. SINGULAIR [Concomitant]
     Active Substance: MONTELUKAST SODIUM
     Dosage: UNK, AS NEEDED(SINGULAIR[PRN] 1 PO (ORAL)/PM)
     Route: 048
  20. PREMARIN [Suspect]
     Active Substance: ESTROGENS, CONJUGATED
     Indication: MENOPAUSE
     Dosage: 0.625 MG, UNK(.625MG PO (ORAL)-5DAYS/WEEK)
     Route: 048
     Dates: start: 201705
  21. GLUCOSAMINE/MSM [Concomitant]
     Dosage: UNK, DAILY [1500/500MG-2 PO (ORAL)/DAY]
     Route: 048

REACTIONS (4)
  - Off label use [Unknown]
  - Nocturia [Unknown]
  - Product dispensing error [Unknown]
  - Drug ineffective [Unknown]

NARRATIVE: CASE EVENT DATE: 201705
